FAERS Safety Report 12617826 (Version 2)
Quarter: 2016Q3

REPORT INFORMATION
  Report Type: Spontaneous
  Country: US (occurrence: US)
  Receive Date: 20160803
  Receipt Date: 20160829
  Transmission Date: 20161109
  Serious: Yes (Death)
  Sender: FDA-Public Use
  Company Number: US-PFIZER INC-2016365050

PATIENT
  Age: 61 Year
  Sex: Male
  Weight: 83.9 kg

DRUGS (1)
  1. SUTENT [Suspect]
     Active Substance: SUNITINIB MALATE
     Indication: RENAL CANCER
     Dosage: 50 MG, CYCLIC (1 CAP D1-D28 Q42D)
     Route: 048
     Dates: start: 20160719

REACTIONS (8)
  - Blister [Unknown]
  - Death [Fatal]
  - Nausea [Unknown]
  - Burning sensation [Unknown]
  - Vomiting [Unknown]
  - Erythema [Unknown]
  - Dysphagia [Unknown]
  - Respiratory tract congestion [Unknown]

NARRATIVE: CASE EVENT DATE: 2016
